FAERS Safety Report 6917012-6 (Version None)
Quarter: 2010Q3

REPORT INFORMATION
  Report Type: 
  Country: None (occurrence: None)
  Receive Date: 20100810
  Receipt Date: 20100723
  Transmission Date: 20110219
  Serious: Yes (Other)
  Sender: FDA-Public Use
  Company Number: A0866861A

PATIENT
  Age: 49 Year
  Sex: Female

DRUGS (3)
  1. TYKERB [Suspect]
     Indication: PRODUCT USED FOR UNKNOWN INDICATION
     Dosage: 4TAB PER DAY
     Route: 048
     Dates: start: 20100602
  2. XELODA [Concomitant]
     Dates: start: 20100602
  3. STEROIDS [Concomitant]

REACTIONS (11)
  - ASTHENIA [None]
  - DYSPEPSIA [None]
  - ERUCTATION [None]
  - GAIT DISTURBANCE [None]
  - JOINT SPRAIN [None]
  - MUSCLE SPASMS [None]
  - MUSCULAR WEAKNESS [None]
  - NEURALGIA [None]
  - PALMAR-PLANTAR ERYTHRODYSAESTHESIA SYNDROME [None]
  - SKIN CHAPPED [None]
  - UPPER-AIRWAY COUGH SYNDROME [None]
